FAERS Safety Report 4530106-8 (Version None)
Quarter: 2004Q4

REPORT INFORMATION
  Report Type: 
  Country: None (occurrence: None)
  Receive Date: 20041217
  Receipt Date: 20030902
  Transmission Date: 20050328
  Serious: Yes (Hospitalization)
  Sender: FDA-Public Use
  Company Number: JP-BRISTOL-MYERS SQUIBB COMPANY-12373213

PATIENT
  Age: 77 Year
  Sex: Male

DRUGS (12)
  1. TAXOL [Suspect]
     Indication: PROSTATE CANCER
     Dosage: ROUTE OF ADMINISTRATION = DR.
     Route: 042
     Dates: start: 20010820, end: 20010827
  2. PARAPLATIN [Suspect]
     Indication: PROSTATE CANCER
     Dosage: ROUTE OF ADMINISTRATION=DR
     Route: 042
     Dates: start: 20010820, end: 20010820
  3. ESTRAMUSTINE PHOSPHATE SODIUM [Suspect]
     Indication: PROSTATE CANCER
     Route: 048
     Dates: start: 20010820, end: 20010913
  4. GLYCYRON [Concomitant]
     Dosage: 1 DOSAGE FORM = 3 TABLETS
     Route: 048
     Dates: start: 20010822
  5. STRONGER NEO-MINOPHAGEN C [Concomitant]
     Route: 042
     Dates: start: 20010809
  6. PIPERACILLIN SODIUM [Concomitant]
     Dosage: ROUTE=DR
     Route: 042
     Dates: start: 20010904, end: 20010911
  7. FLUMARIN [Concomitant]
     Dosage: ROUTE=DR
     Route: 042
     Dates: start: 20010831, end: 20010904
  8. ALBUMIN (HUMAN) [Concomitant]
     Dosage: ROUTE=DR
     Route: 042
     Dates: start: 20010907, end: 20010912
  9. VENOGLOBULIN-I [Concomitant]
     Dosage: ROUTE=DR
     Route: 042
     Dates: start: 20010902, end: 20010904
  10. NEUTROGIN [Concomitant]
     Route: 058
     Dates: start: 20010831, end: 20010905
  11. VOLTAREN [Concomitant]
     Route: 054
     Dates: start: 20010809
  12. MUCOSTA [Concomitant]
     Route: 048
     Dates: start: 20010822

REACTIONS (5)
  - HEPATIC FUNCTION ABNORMAL [None]
  - JAUNDICE [None]
  - PNEUMONIA [None]
  - THROMBOCYTOPENIA [None]
  - WHITE BLOOD CELL COUNT DECREASED [None]
